FAERS Safety Report 9993200 (Version 1)
Quarter: 2014Q1

REPORT INFORMATION
  Report Type: Spontaneous
  Country: US (occurrence: US)
  Receive Date: 20140310
  Receipt Date: 20140310
  Transmission Date: 20141002
  Serious: Yes (Other)
  Sender: FDA-Public Use
  Company Number: CHPA2014US003615

PATIENT
  Sex: Male

DRUGS (1)
  1. EX-LAX UNKNOWN [Suspect]
     Dosage: UNK, ONCE/SINGLE
     Route: 048
     Dates: start: 20140304, end: 20140304

REACTIONS (3)
  - Rectal haemorrhage [Not Recovered/Not Resolved]
  - Defaecation urgency [Not Recovered/Not Resolved]
  - Accidental exposure to product [Unknown]
